FAERS Safety Report 15883951 (Version 2)
Quarter: 2019Q1

REPORT INFORMATION
  Report Type: Spontaneous
  Country: US (occurrence: US)
  Receive Date: 20190129
  Receipt Date: 20190211
  Transmission Date: 20190417
  Serious: Yes (Death, Life-Threatening, Disabling, Other)
  Sender: FDA-Public Use
  Company Number: PHEH2019US003955

PATIENT
  Age: 9 Year
  Sex: Female

DRUGS (37)
  1. ACETAMINOPHEN. [Concomitant]
     Active Substance: ACETAMINOPHEN
     Dosage: 600 MG, Q6H
     Route: 048
     Dates: start: 20190122, end: 20190123
  2. GABAPENTIN. [Concomitant]
     Active Substance: GABAPENTIN
     Indication: PRODUCT USED FOR UNKNOWN INDICATION
     Dosage: 500 MG, TID
     Route: 065
     Dates: start: 20190116, end: 20190123
  3. ZOFRAN [Concomitant]
     Active Substance: ONDANSETRON HYDROCHLORIDE
     Indication: PRODUCT USED FOR UNKNOWN INDICATION
     Dosage: 6 MG, Q6H
     Route: 042
     Dates: start: 20190122, end: 20190123
  4. URSODIOL. [Concomitant]
     Active Substance: URSODIOL
     Indication: PRODUCT USED FOR UNKNOWN INDICATION
     Dosage: 250 MG, BID
     Route: 048
     Dates: start: 20190116, end: 20190123
  5. TOCILIZUMAB. [Concomitant]
     Active Substance: TOCILIZUMAB
     Indication: CYTOKINE RELEASE SYNDROME
     Dosage: 330 MG, ONCE/SINGLE
     Route: 042
     Dates: start: 20190123, end: 20190123
  6. TOCILIZUMAB. [Concomitant]
     Active Substance: TOCILIZUMAB
     Dosage: 830 MG, ONCE/SINGLE
     Route: 042
     Dates: start: 20190124
  7. ACETAMINOPHEN. [Concomitant]
     Active Substance: ACETAMINOPHEN
     Indication: PYREXIA
     Dosage: 480 MG, Q4H PRN
     Route: 048
     Dates: start: 20190118, end: 20190119
  8. ACETAMINOPHEN. [Concomitant]
     Active Substance: ACETAMINOPHEN
     Dosage: 480 MG, Q4H
     Route: 048
     Dates: start: 20190119, end: 20190121
  9. PENTAMIDINE [Concomitant]
     Active Substance: PENTAMIDINE
     Indication: PRODUCT USED FOR UNKNOWN INDICATION
     Dosage: 165 MG, UNK (Q28 DYS)
     Route: 042
     Dates: start: 20190114
  10. VORICONAZOLE. [Concomitant]
     Active Substance: VORICONAZOLE
     Indication: PRODUCT USED FOR UNKNOWN INDICATION
     Dosage: 200 MG, UNK
     Route: 065
  11. ALLOPUR [Concomitant]
     Active Substance: ALLOPURINOL
     Indication: PRODUCT USED FOR UNKNOWN INDICATION
     Dosage: 100 MG, TID
     Route: 065
  12. ROCURONIUM [Concomitant]
     Active Substance: ROCURONIUM BROMIDE
     Indication: PRODUCT USED FOR UNKNOWN INDICATION
     Dosage: 0.6 OT, (MG/KG/HR) UNK
     Route: 042
     Dates: start: 20190123
  13. NACL [Concomitant]
     Active Substance: SODIUM CHLORIDE
     Indication: BRAIN OEDEMA
     Dosage: 120 ML, ONCE/SINGLE
     Route: 040
     Dates: start: 20190124, end: 20190124
  14. NOREPINEPHRINE. [Concomitant]
     Active Substance: NOREPINEPHRINE
     Indication: HYPOTENSION
     Dosage: O.1 TO 2 UCG/KG/MIN, QD
     Route: 041
  15. ACYCLOVIR. [Concomitant]
     Active Substance: ACYCLOVIR
     Indication: PRODUCT USED FOR UNKNOWN INDICATION
     Dosage: 800 MG, BID
     Route: 048
     Dates: start: 20190116, end: 20190122
  16. ACYCLOVIR. [Concomitant]
     Active Substance: ACYCLOVIR
     Dosage: 300 MG, Q12H
     Route: 042
     Dates: start: 20190122, end: 20190123
  17. METHADONE [Concomitant]
     Active Substance: METHADONE HYDROCHLORIDE
     Indication: PRODUCT USED FOR UNKNOWN INDICATION
     Dosage: 4 MG, Q8H
     Route: 048
     Dates: start: 20190116, end: 20190123
  18. EPINEPHRINE. [Concomitant]
     Active Substance: EPINEPHRINE
     Indication: HYPOTENSION
     Dosage: 0.15 TO 0.5 UG/KG/MIN, QD
     Route: 041
     Dates: start: 20190123
  19. AMLODIPIN [Concomitant]
     Active Substance: AMLODIPINE BESYLATE
     Dosage: 2.5 MG, TID
     Route: 048
     Dates: start: 20190122, end: 20190123
  20. CEFEPIME [Concomitant]
     Active Substance: CEFEPIME HYDROCHLORIDE
     Indication: PRODUCT USED FOR UNKNOWN INDICATION
     Dosage: 2 G, Q8H
     Route: 042
     Dates: start: 20190116, end: 20190123
  21. VALIUM [Concomitant]
     Active Substance: DIAZEPAM
     Indication: MUSCLE SPASMS
     Dosage: 2 MG, Q6H (PRN)
     Route: 048
     Dates: start: 20190116, end: 20190123
  22. HYDROMORPHONE [Concomitant]
     Active Substance: HYDROMORPHONE
     Indication: PRODUCT USED FOR UNKNOWN INDICATION
     Dosage: UNK (PCA)
     Route: 065
     Dates: start: 20190115, end: 20190121
  23. KYMRIAH [Suspect]
     Active Substance: TISAGENLECLEUCEL
     Indication: ACUTE LYMPHOCYTIC LEUKAEMIA REFRACTORY
     Dosage: 2.3X10E6 CAR POSITIVE VIABLE T CELLS/KG BODY WEIGHT
     Route: 042
     Dates: start: 20190116
  24. ACETAMINOPHEN. [Concomitant]
     Active Substance: ACETAMINOPHEN
     Indication: PAIN
     Dosage: 650 MG, Q4H PRN
     Route: 048
     Dates: end: 20190118
  25. CLONIDINE. [Concomitant]
     Active Substance: CLONIDINE
     Indication: PRODUCT USED FOR UNKNOWN INDICATION
     Dosage: 0.1 MG, QW
     Route: 062
  26. KETAMINE [Concomitant]
     Active Substance: KETAMINE
     Indication: PRODUCT USED FOR UNKNOWN INDICATION
     Dosage: 0.05 OT, (MG/KG/HR) UNK
     Route: 042
     Dates: start: 20190119, end: 20190121
  27. LASIX [Concomitant]
     Active Substance: FUROSEMIDE
     Indication: PRODUCT USED FOR UNKNOWN INDICATION
     Dosage: 20 MG, QD
     Route: 042
     Dates: start: 20190118, end: 20190122
  28. POTASSIUM PHOSPHATE [Concomitant]
     Active Substance: POTASSIUM PHOSPHATE
     Indication: PRODUCT USED FOR UNKNOWN INDICATION
     Dosage: 6 MMOL, UNK
     Route: 042
     Dates: start: 20190120, end: 20190121
  29. SODIUM BICARBONATE. [Concomitant]
     Active Substance: SODIUM BICARBONATE
     Indication: PRODUCT USED FOR UNKNOWN INDICATION
     Dosage: 150 MEQ, UNK
     Route: 042
     Dates: start: 20190123
  30. VORICONAZOLE. [Concomitant]
     Active Substance: VORICONAZOLE
     Dosage: 150 MG, Q12H
     Route: 048
     Dates: start: 20190116, end: 20190123
  31. FENTANYL. [Concomitant]
     Active Substance: FENTANYL
     Indication: PRODUCT USED FOR UNKNOWN INDICATION
     Dosage: 2 UNK,UNK (MCG/KG/HR)
     Route: 042
     Dates: start: 20190123
  32. NACL [Concomitant]
     Active Substance: SODIUM CHLORIDE
     Dosage: 200 ML, ONCE/SINGLE
     Route: 040
     Dates: start: 20190124
  33. AMLODIPIN [Concomitant]
     Active Substance: AMLODIPINE BESYLATE
     Indication: PRODUCT USED FOR UNKNOWN INDICATION
     Dosage: 2.5 MG, TID
     Route: 048
     Dates: start: 20190116, end: 20190119
  34. NEXIUM [Concomitant]
     Active Substance: ESOMEPRAZOLE MAGNESIUM
     Indication: PRODUCT USED FOR UNKNOWN INDICATION
     Dosage: 20 MG, Q24H
     Route: 042
     Dates: start: 20190122, end: 20190123
  35. LIDOCAINE. [Concomitant]
     Active Substance: LIDOCAINE
     Indication: PRODUCT USED FOR UNKNOWN INDICATION
     Dosage: 5 %, Q24H
     Route: 065
     Dates: start: 20190119, end: 20190123
  36. SCOPOLAMINE [Concomitant]
     Active Substance: SCOPOLAMINE
     Indication: PRODUCT USED FOR UNKNOWN INDICATION
     Dosage: UNK UNK, Q72H
     Dates: start: 20190122
  37. NIFEDIPINE. [Concomitant]
     Active Substance: NIFEDIPINE
     Indication: HYPERTENSION
     Dosage: 10 MG, Q4H (PRN)
     Route: 048
     Dates: start: 20190124

REACTIONS (9)
  - Mental status changes [Not Recovered/Not Resolved]
  - Neurotoxicity [Unknown]
  - Respiratory failure [Unknown]
  - Oxygen saturation decreased [Not Recovered/Not Resolved]
  - Bradycardia [Unknown]
  - Pyrexia [Not Recovered/Not Resolved]
  - Sinus tachycardia [Unknown]
  - Cytokine release syndrome [Fatal]
  - Cardiac arrest [Fatal]

NARRATIVE: CASE EVENT DATE: 20190116
